FAERS Safety Report 18559770 (Version 21)
Quarter: 2025Q3

REPORT INFORMATION
  Report Type: Report from Study
  Country: US (occurrence: US)
  Receive Date: 20201130
  Receipt Date: 20250811
  Transmission Date: 20251021
  Serious: Yes (Hospitalization, Other)
  Sender: TAKEDA
  Company Number: US-TAKEDA-2020TUS052719

PATIENT
  Age: 78 Year
  Sex: Female
  Weight: 96 kg

DRUGS (40)
  1. HUMAN IMMUNOGLOBULIN G [Suspect]
     Active Substance: HUMAN IMMUNOGLOBULIN G
     Indication: Immunodeficiency common variable
     Dosage: 10 GRAM, 1/WEEK
  2. DOXYCYCLINE [Suspect]
     Active Substance: DOXYCYCLINE
     Indication: Product used for unknown indication
  3. DIPHENHYDRAMINE [Concomitant]
     Active Substance: DIPHENHYDRAMINE
  4. PREDNISONE [Concomitant]
     Active Substance: PREDNISONE
  5. SYMBICORT [Concomitant]
     Active Substance: BUDESONIDE\FORMOTEROL FUMARATE DIHYDRATE
  6. ALBUTEROL SULFATE [Concomitant]
     Active Substance: ALBUTEROL SULFATE
  7. NASACORT [Concomitant]
     Active Substance: TRIAMCINOLONE ACETONIDE
  8. EPINEPHRINE [Concomitant]
     Active Substance: EPINEPHRINE
  9. ACETAMINOPHEN [Concomitant]
     Active Substance: ACETAMINOPHEN
  10. TRETINOIN [Concomitant]
     Active Substance: TRETINOIN
  11. SINGULAIR [Concomitant]
     Active Substance: MONTELUKAST SODIUM
  12. NOVOLOG [Concomitant]
     Active Substance: INSULIN ASPART
  13. PRAVASTATIN SODIUM [Concomitant]
     Active Substance: PRAVASTATIN SODIUM
  14. LANTUS [Concomitant]
     Active Substance: INSULIN GLARGINE
  15. VICTOZA [Concomitant]
     Active Substance: LIRAGLUTIDE
  16. VITAMIN D3 [Concomitant]
     Active Substance: CHOLECALCIFEROL
  17. FLORAJEN3 [Concomitant]
  18. GLUTATHIONE [Concomitant]
     Active Substance: GLUTATHIONE
  19. MIRALAX [Concomitant]
     Active Substance: POLYETHYLENE GLYCOL 3350
  20. ALLOPURINOL [Concomitant]
     Active Substance: ALLOPURINOL
  21. SUDOGEST [Concomitant]
     Active Substance: PSEUDOEPHEDRINE HYDROCHLORIDE
  22. PLAVIX [Concomitant]
     Active Substance: CLOPIDOGREL BISULFATE
  23. ALPHA LIPOIC ACID [Concomitant]
     Active Substance: .ALPHA.-LIPOIC ACID
  24. OXYCODONE AND ACETAMINOPHEN [Concomitant]
     Active Substance: ACETAMINOPHEN\OXYCODONE HYDROCHLORIDE
  25. FOSAMAX [Concomitant]
     Active Substance: ALENDRONATE SODIUM
  26. OXYGEN [Concomitant]
     Active Substance: OXYGEN
  27. ELIQUIS [Concomitant]
     Active Substance: APIXABAN
  28. POTASSIUM [Concomitant]
     Active Substance: POTASSIUM
  29. MUCINEX [Concomitant]
     Active Substance: GUAIFENESIN
  30. ALBUTEROL SULFATE [Concomitant]
     Active Substance: ALBUTEROL SULFATE
  31. OXYCODONE HYDROCHLORIDE [Concomitant]
     Active Substance: OXYCODONE HYDROCHLORIDE
  32. GARLIC [Concomitant]
     Active Substance: GARLIC
  33. Coq [Concomitant]
  34. LASIX [Concomitant]
     Active Substance: FUROSEMIDE
  35. LIDOCAINE [Concomitant]
     Active Substance: LIDOCAINE
  36. VENTOLIN [Concomitant]
     Active Substance: ALBUTEROL SULFATE
  37. PROTONIX [Concomitant]
     Active Substance: PANTOPRAZOLE SODIUM
  38. DOXYCYCLINE HYCLATE [Concomitant]
     Active Substance: DOXYCYCLINE HYCLATE
  39. PAXLOVID [Concomitant]
     Active Substance: NIRMATRELVIR\RITONAVIR
  40. LANTUS SOLOSTAR [Concomitant]
     Active Substance: INSULIN GLARGINE

REACTIONS (25)
  - Cardiac disorder [Unknown]
  - Drug hypersensitivity [Unknown]
  - Electrocardiogram QT prolonged [Unknown]
  - Hip fracture [Unknown]
  - Sepsis [Unknown]
  - Colitis [Unknown]
  - Cardiac infection [Unknown]
  - Atrial fibrillation [Unknown]
  - Food poisoning [Unknown]
  - Cardiac failure congestive [Unknown]
  - Sinusitis [Unknown]
  - Diverticulitis [Unknown]
  - Arthropod bite [Unknown]
  - Infected bite [Unknown]
  - Illness [Unknown]
  - Respiratory tract infection [Unknown]
  - Seasonal allergy [Unknown]
  - Bronchitis [Unknown]
  - Urinary tract infection [Unknown]
  - Pleural effusion [Unknown]
  - Upper respiratory tract infection [Unknown]
  - Asthma [Unknown]
  - Swelling [Unknown]
  - Decreased appetite [Unknown]
  - Nausea [Unknown]

NARRATIVE: CASE EVENT DATE: 20250701
